FAERS Safety Report 16089401 (Version 1)
Quarter: 2019Q2

REPORT INFORMATION
  Report Type: Spontaneous
  Country: US (occurrence: US)
  Receive Date: 20190319
  Receipt Date: 20190319
  Transmission Date: 20190711
  Serious: Yes (Other)
  Sender: FDA-Public Use
  Company Number: None

PATIENT
  Age: 25 Year
  Sex: Male
  Weight: 108.41 kg

DRUGS (1)
  1. BUPRENORPHINE/NALOXONE, 8 MG [Suspect]
     Active Substance: BUPRENORPHINE\NALOXONE
     Indication: DRUG WITHDRAWAL MAINTENANCE THERAPY
     Dates: start: 20190204, end: 20190318

REACTIONS (3)
  - Dry mouth [None]
  - Therapy non-responder [None]
  - Therapeutic product effect delayed [None]

NARRATIVE: CASE EVENT DATE: 20190318
